FAERS Safety Report 5222476-2 (Version None)
Quarter: 2007Q1

REPORT INFORMATION
  Report Type: 
  Country: None (occurrence: None)
  Receive Date: 20070129
  Receipt Date: 20060418
  Transmission Date: 20070707
  Serious: No
  Sender: FDA-Public Use
  Company Number: US-BRISTOL-MYERS SQUIBB COMPANY-13301346

PATIENT
  Age: 48 Year
  Sex: Female

DRUGS (1)
  1. CARDIOLITE [Suspect]
     Indication: CARDIAC IMAGING PROCEDURE
     Dates: start: 20060201, end: 20060201

REACTIONS (2)
  - ANXIETY [None]
  - VOMITING [None]
